FAERS Safety Report 7473892-X (Version None)
Quarter: 2011Q2

REPORT INFORMATION
  Report Type: 
  Country: None (occurrence: None)
  Receive Date: 20110511
  Receipt Date: 20110509
  Transmission Date: 20111010
  Serious: Yes (Life-Threatening)
  Sender: FDA-Public Use
  Company Number: GB-PFIZER INC-2011099468

PATIENT
  Age: 40 Year
  Sex: Male

DRUGS (5)
  1. ACETYLSALICYLIC ACID [Concomitant]
     Dosage: 75 MG, 1X/DAY
  2. PROGRAF [Concomitant]
     Dosage: 2 MG, 2X/DAY
  3. CELLCEPT [Concomitant]
     Dosage: 750 G, 2X/DAY
  4. RANITIDINE [Concomitant]
     Dosage: 150 MG, 1X/DAY
  5. PIPERACILLIN AND TAZOBACTAM [Suspect]
     Indication: PROPHYLAXIS
     Dosage: 4.5 MG, 1/TOTAL
     Route: 042
     Dates: start: 20110416, end: 20110416

REACTIONS (4)
  - PARAESTHESIA [None]
  - LIP SWELLING [None]
  - RASH [None]
  - SWOLLEN TONGUE [None]
